FAERS Safety Report 13944717 (Version 1)
Quarter: 2017Q3

REPORT INFORMATION
  Report Type: Spontaneous
  Country: US (occurrence: US)
  Receive Date: 20170907
  Receipt Date: 20170907
  Transmission Date: 20171128
  Serious: No
  Sender: FDA-Public Use
  Company Number: US-ROCHE-1420186

PATIENT
  Age: 44 Year
  Sex: Female

DRUGS (2)
  1. RITUXAN [Suspect]
     Active Substance: RITUXIMAB
     Dosage: 2 X 4 RATE
     Route: 065
  2. RITUXAN [Suspect]
     Active Substance: RITUXIMAB
     Indication: EXTRANODAL MARGINAL ZONE B-CELL LYMPHOMA (MALT TYPE)
     Dosage: 2 X 4 RATE
     Route: 065
     Dates: start: 201404

REACTIONS (16)
  - Constipation [Recovered/Resolved]
  - Fatigue [Unknown]
  - Photophobia [Unknown]
  - Abdominal distension [Recovered/Resolved]
  - Skin fissures [Recovered/Resolved]
  - Weight decreased [Not Recovered/Not Resolved]
  - Headache [Unknown]
  - Skin exfoliation [Recovered/Resolved]
  - Confusional state [Unknown]
  - Pharyngitis [Recovered/Resolved]
  - Dyspnoea [Recovered/Resolved]
  - Infection [Unknown]
  - Hepatic pain [Unknown]
  - Breast neoplasm [Unknown]
  - Balance disorder [Unknown]
  - Abdominal pain [Unknown]
